FAERS Safety Report 25257543 (Version 1)
Quarter: 2025Q2

REPORT INFORMATION
  Report Type: Spontaneous
  Country: FR (occurrence: FR)
  Receive Date: 20250430
  Receipt Date: 20250430
  Transmission Date: 20250717
  Serious: Yes (Hospitalization)
  Sender: MYLAN
  Company Number: None

PATIENT
  Age: 52 Year
  Sex: Female
  Weight: 120 kg

DRUGS (12)
  1. VENLAFAXINE [Suspect]
     Active Substance: VENLAFAXINE HYDROCHLORIDE
     Indication: Product used for unknown indication
     Dates: start: 20250402, end: 20250402
  2. VENLAFAXINE [Suspect]
     Active Substance: VENLAFAXINE HYDROCHLORIDE
     Route: 048
     Dates: start: 20250402, end: 20250402
  3. VENLAFAXINE [Suspect]
     Active Substance: VENLAFAXINE HYDROCHLORIDE
     Route: 048
     Dates: start: 20250402, end: 20250402
  4. VENLAFAXINE [Suspect]
     Active Substance: VENLAFAXINE HYDROCHLORIDE
     Dates: start: 20250402, end: 20250402
  5. TRAMADOL [Suspect]
     Active Substance: TRAMADOL
     Indication: Product used for unknown indication
     Dates: start: 20250402, end: 20250402
  6. TRAMADOL [Suspect]
     Active Substance: TRAMADOL
     Route: 048
     Dates: start: 20250402, end: 20250402
  7. TRAMADOL [Suspect]
     Active Substance: TRAMADOL
     Route: 048
     Dates: start: 20250402, end: 20250402
  8. TRAMADOL [Suspect]
     Active Substance: TRAMADOL
     Dates: start: 20250402, end: 20250402
  9. ESTAZOLAM [Suspect]
     Active Substance: ESTAZOLAM
     Indication: Product used for unknown indication
     Dates: start: 20250402, end: 20250402
  10. ESTAZOLAM [Suspect]
     Active Substance: ESTAZOLAM
     Route: 048
     Dates: start: 20250402, end: 20250402
  11. ESTAZOLAM [Suspect]
     Active Substance: ESTAZOLAM
     Route: 048
     Dates: start: 20250402, end: 20250402
  12. ESTAZOLAM [Suspect]
     Active Substance: ESTAZOLAM
     Dates: start: 20250402, end: 20250402

REACTIONS (1)
  - Suicide attempt [Recovered/Resolved]

NARRATIVE: CASE EVENT DATE: 20250402
